FAERS Safety Report 12825768 (Version 3)
Quarter: 2017Q4

REPORT INFORMATION
  Report Type: Spontaneous
  Country: US (occurrence: US)
  Receive Date: 20161007
  Receipt Date: 20171006
  Transmission Date: 20180320
  Serious: No
  Sender: FDA-Public Use
  Company Number: US-TEVA-698216USA

PATIENT
  Sex: Female

DRUGS (13)
  1. GABAPENTIN. [Concomitant]
     Active Substance: GABAPENTIN
  2. GLATOPA [Concomitant]
     Active Substance: GLATIRAMER ACETATE
  3. CALCIUM [Concomitant]
     Active Substance: CALCIUM
  4. KELP [Concomitant]
     Active Substance: KELP
  5. MULTIVITAMIN [Concomitant]
     Active Substance: VITAMINS
  6. ADVIL [Concomitant]
     Active Substance: IBUPROFEN
  7. EXCEDRIN [Concomitant]
     Active Substance: ACETAMINOPHEN\ASPIRIN\CAFFEINE
  8. FOLIC ACID. [Concomitant]
     Active Substance: FOLIC ACID
  9. OMEGA 3 [Concomitant]
     Active Substance: OMEGA-3 FATTY ACIDS
  10. COPAXONE [Suspect]
     Active Substance: GLATIRAMER ACETATE
     Indication: MULTIPLE SCLEROSIS
     Dosage: 20 MILLIGRAM DAILY;
     Route: 058
     Dates: start: 20100717
  11. MAGNESIUM [Concomitant]
     Active Substance: MAGNESIUM
  12. FLAXSEED [Concomitant]
     Active Substance: FLAX SEED
  13. TEMAZEPAM. [Concomitant]
     Active Substance: TEMAZEPAM

REACTIONS (4)
  - Fall [Not Recovered/Not Resolved]
  - Injection site atrophy [Unknown]
  - Muscle spasms [Unknown]
  - Motor dysfunction [Not Recovered/Not Resolved]

NARRATIVE: CASE EVENT DATE: 2016
